FAERS Safety Report 5858954-2 (Version None)
Quarter: 2008Q3

REPORT INFORMATION
  Report Type: 
  Country: None (occurrence: None)
  Receive Date: 20080825
  Receipt Date: 20080813
  Transmission Date: 20090109
  Serious: Yes (Hospitalization)
  Sender: FDA-Public Use
  Company Number: LUP-0331

PATIENT
  Age: 61 Year
  Sex: Male

DRUGS (2)
  1. LISINOPRIL [Suspect]
     Indication: HYPERTENSION
     Dosage: 20 MG QD PO
     Route: 048
     Dates: start: 20080401, end: 20080624
  2. METOPROLOL TARTRATE [Concomitant]

REACTIONS (5)
  - BLOOD PRESSURE INCREASED [None]
  - CONCUSSION [None]
  - DISORIENTATION [None]
  - DYSPNOEA [None]
  - SYNCOPE [None]
